FAERS Safety Report 23126058 (Version 1)
Quarter: 2023Q4

REPORT INFORMATION
  Report Type: Spontaneous
  Country: US (occurrence: US)
  Receive Date: 20231030
  Receipt Date: 20231030
  Transmission Date: 20240110
  Serious: Yes (Hospitalization)
  Sender: FDA-Public Use
  Company Number: US-JNJFOC-20231056572

PATIENT
  Age: 61 Year
  Sex: Female
  Weight: 44 kg

DRUGS (19)
  1. OPSUMIT [Suspect]
     Active Substance: MACITENTAN
     Indication: Pulmonary arterial hypertension
     Route: 048
     Dates: end: 202308
  2. TREPROSTINIL [Suspect]
     Active Substance: TREPROSTINIL
     Indication: Pulmonary arterial hypertension
     Route: 048
     Dates: start: 202310, end: 202310
  3. TREPROSTINIL [Suspect]
     Active Substance: TREPROSTINIL
     Dosage: 1 TABLET OF 5 MG, 0.25 MG AND 0.125 MG EACH AND 2 TABLETS OF 1 MG
     Route: 048
     Dates: start: 202310
  4. TREPROSTINIL [Suspect]
     Active Substance: TREPROSTINIL
     Route: 048
     Dates: start: 20200728
  5. TREPROSTINIL [Suspect]
     Active Substance: TREPROSTINIL
     Route: 048
  6. TREPROSTINIL [Suspect]
     Active Substance: TREPROSTINIL
     Route: 048
  7. TREPROSTINIL [Suspect]
     Active Substance: TREPROSTINIL
     Route: 048
  8. ATORVASTATIN [Concomitant]
     Active Substance: ATORVASTATIN
  9. METHADONE HYDROCHLORIDE [Concomitant]
     Active Substance: METHADONE HYDROCHLORIDE
     Route: 048
  10. METFORMIN [Concomitant]
     Active Substance: METFORMIN HYDROCHLORIDE
     Indication: Gastrointestinal disorder
  11. OXYGEN [Concomitant]
     Active Substance: OXYGEN
  12. SILDENAFIL CITRATE [Concomitant]
     Active Substance: SILDENAFIL CITRATE
  13. GABAPENTIN [Concomitant]
     Active Substance: GABAPENTIN
  14. ASPIRIN [Concomitant]
     Active Substance: ASPIRIN
  15. ALBUTEROL SULFATE [Concomitant]
     Active Substance: ALBUTEROL SULFATE
  16. INCRUSE ELLIPTA [Concomitant]
     Active Substance: UMECLIDINIUM BROMIDE
  17. PREDNISONE [Concomitant]
     Active Substance: PREDNISONE
  18. FERROUS SULFATE [Concomitant]
     Active Substance: FERROUS SULFATE
  19. LETAIRIS [Concomitant]
     Active Substance: AMBRISENTAN

REACTIONS (2)
  - Abnormal loss of weight [Unknown]
  - Feeling abnormal [Recovering/Resolving]
